FAERS Safety Report 9473874 (Version 2)
Quarter: 2013Q3

REPORT INFORMATION
  Report Type: Spontaneous
  Country: US (occurrence: US)
  Receive Date: 20130823
  Receipt Date: 20130830
  Transmission Date: 20140515
  Serious: Yes (Other)
  Sender: FDA-Public Use
  Company Number: CHPA2013US013250

PATIENT
  Age: 63 Year
  Sex: Male

DRUGS (4)
  1. VOLTAREN GEL [Suspect]
     Indication: PAIN IN EXTREMITY
     Dosage: 4 G, QID
     Route: 061
     Dates: start: 20130819, end: 20130820
  2. INSULIN [Concomitant]
  3. ANTIHYPERTENSIVE DRUGS [Concomitant]
  4. ANTICOAGULANTS [Concomitant]

REACTIONS (4)
  - Disorientation [Recovered/Resolved]
  - Headache [Recovered/Resolved]
  - Disturbance in attention [Recovered/Resolved]
  - Off label use [Unknown]
